FAERS Safety Report 15640640 (Version 3)
Quarter: 2019Q1

REPORT INFORMATION
  Report Type: Spontaneous
  Country: US (occurrence: US)
  Receive Date: 20181120
  Receipt Date: 20190328
  Transmission Date: 20190417
  Serious: No
  Sender: FDA-Public Use
  Company Number: US-PFIZER INC-2018475938

PATIENT
  Sex: Male

DRUGS (2)
  1. CLINDAMYCIN PALMITATE HCL [Suspect]
     Active Substance: CLINDAMYCIN PALMITATE HYDROCHLORIDE
     Dosage: UNK
  2. DULOXETINE HYDROCHLORIDE. [Suspect]
     Active Substance: DULOXETINE HYDROCHLORIDE
     Dosage: UNK

REACTIONS (2)
  - Dizziness [Unknown]
  - Drug hypersensitivity [Unknown]
